FAERS Safety Report 4934623-8 (Version None)
Quarter: 2006Q1

REPORT INFORMATION
  Report Type: 
  Country: None (occurrence: None)
  Receive Date: 20060307
  Receipt Date: 20050324
  Transmission Date: 20060701
  Serious: Yes (Hospitalization)
  Sender: FDA-Public Use
  Company Number: US-MERCK-0503USA04619

PATIENT
  Age: 60 Year
  Sex: Female
  Weight: 80 kg

DRUGS (2)
  1. VIOXX [Suspect]
     Indication: ARTHRITIS
     Route: 048
     Dates: start: 19991201, end: 20040501
  2. TYLENOL (CAPLET) [Concomitant]
     Route: 065

REACTIONS (8)
  - CARDIAC DISORDER [None]
  - CARPAL TUNNEL SYNDROME [None]
  - COLON INJURY [None]
  - DEVICE RELATED INFECTION [None]
  - INFECTION [None]
  - JOINT INJURY [None]
  - ROTATOR CUFF SYNDROME [None]
  - THROMBOSIS [None]
